FAERS Safety Report 5361144-3 (Version None)
Quarter: 2007Q2

REPORT INFORMATION
  Report Type: 
  Country: None (occurrence: None)
  Receive Date: 20070614
  Receipt Date: 20070605
  Transmission Date: 20071010
  Serious: Yes (Other)
  Sender: FDA-Public Use
  Company Number: 070606-0000578

PATIENT
  Age: 5 Day
  Sex: Female

DRUGS (3)
  1. INDOCIN [Suspect]
     Indication: INJECTION
     Dosage: IV
  2. INDOCIN [Suspect]
     Indication: PATENT DUCTUS ARTERIOSUS
     Dosage: IV
  3. INDOCIN [Suspect]
     Indication: PROPHYLAXIS
     Dosage: IV

REACTIONS (2)
  - INTESTINAL PERFORATION [None]
  - PERIVENTRICULAR LEUKOMALACIA [None]
